FAERS Safety Report 7826690-9 (Version None)
Quarter: 2011Q4

REPORT INFORMATION
  Report Type: 
  Country: None (occurrence: None)
  Receive Date: 20111020
  Receipt Date: 20100301
  Transmission Date: 20120403
  Serious: No
  Sender: FDA-Public Use
  Company Number: US-BAYER-201015468NA

PATIENT
  Age: 49 Year
  Sex: Female
  Weight: 76.19 kg

DRUGS (5)
  1. CLINDAMYCIN [Concomitant]
     Dosage: 300 MG, UNK
  2. SULFAMETHOXAZOLE AND TRIMETHOPRIM [Concomitant]
     Dosage: UNK
  3. CIPROFLOXACIN [Suspect]
     Indication: INFECTION
     Dosage: UNK
     Route: 048
     Dates: start: 20100228
  4. ^IB^ [Concomitant]
  5. VICODIN [Concomitant]

REACTIONS (7)
  - DYSPNOEA [None]
  - POLYURIA [None]
  - HYPERSENSITIVITY [None]
  - INSOMNIA [None]
  - ARTHRALGIA [None]
  - BLISTER [None]
  - URTICARIA [None]
